FAERS Safety Report 5476237-X (Version None)
Quarter: 2007Q3

REPORT INFORMATION
  Report Type: 
  Country: None (occurrence: None)
  Receive Date: 20070904
  Receipt Date: 20070529
  Transmission Date: 20080115
  Serious: No
  Sender: FDA-Public Use
  Company Number: PHEH2007US08224

PATIENT
  Sex: Female

DRUGS (1)
  1. ENABLEX [Suspect]
     Dates: start: 20070529

REACTIONS (2)
  - FATIGUE [None]
  - SOMNOLENCE [None]
